FAERS Safety Report 8189250-9 (Version None)
Quarter: 2012Q1

REPORT INFORMATION
  Report Type: 
  Country: None (occurrence: None)
  Receive Date: 20120307
  Receipt Date: 20120224
  Transmission Date: 20120608
  Serious: Yes (Hospitalization)
  Sender: FDA-Public Use
  Company Number: US-ELI_LILLY_AND_COMPANY-US201108004441

PATIENT
  Sex: Female

DRUGS (6)
  1. FORTEO [Suspect]
     Indication: OSTEOPOROSIS
     Dosage: 20 UG, QD
     Route: 065
     Dates: start: 20110301
  2. FORTEO [Suspect]
     Dosage: 20 UG, QD
     Dates: end: 20120101
  3. ANALGESICS [Concomitant]
     Indication: PAIN
  4. FORTEO [Suspect]
     Dosage: 20 UG, QD
  5. FORTEO [Suspect]
     Dosage: 20 UG, QD
  6. FORTEO [Suspect]
     Dosage: 20 UG, QD

REACTIONS (10)
  - PAIN IN EXTREMITY [None]
  - BONE PAIN [None]
  - MUSCULOSKELETAL DISORDER [None]
  - SURGERY [None]
  - ARTHRALGIA [None]
  - GINGIVAL PAIN [None]
  - HEARING IMPAIRED [None]
  - NECK PAIN [None]
  - HEADACHE [None]
  - PERIPHERAL VASCULAR DISORDER [None]
